FAERS Safety Report 13268947 (Version 1)
Quarter: 2017Q1

REPORT INFORMATION
  Report Type: Spontaneous
  Country: JP (occurrence: JP)
  Receive Date: 20170224
  Receipt Date: 20170224
  Transmission Date: 20170428
  Serious: Yes (Death)
  Sender: FDA-Public Use
  Company Number: JP-MALLINCKRODT-T201700703

PATIENT
  Age: 65 Year
  Sex: Male
  Weight: 57 kg

DRUGS (18)
  1. SENNOSIDE [Concomitant]
     Active Substance: SENNOSIDES
     Dosage: 12 MG, UNK
     Route: 048
     Dates: end: 20141210
  2. SOLDEM 1 [Concomitant]
     Active Substance: DEXTROSE\SODIUM CHLORIDE\SODIUM LACTATE
     Dosage: 500 ML, UNK
     Route: 051
     Dates: start: 20141216, end: 20141216
  3. PREDONINE [Concomitant]
     Active Substance: PREDNISOLONE
     Indication: ANALGESIC THERAPY
     Dosage: 10 MG, UNK
     Route: 051
     Dates: start: 20141216, end: 20141219
  4. ZYPREXA [Concomitant]
     Active Substance: OLANZAPINE
     Dosage: 2.5 MG, UNK
     Route: 048
     Dates: start: 20141127, end: 20141215
  5. MORPHINE HYDROCHLORIDE TRIHYDRATE [Concomitant]
     Active Substance: MORPHINE HYDROCHLORIDE
     Indication: ANALGESIC THERAPY
     Dosage: 50 MG, UNK
     Route: 051
     Dates: start: 20141216, end: 20141219
  6. SERENACE [Concomitant]
     Active Substance: HALOPERIDOL
     Indication: ANALGESIC THERAPY
     Dosage: 2.5 MG, UNK
     Route: 051
     Dates: start: 20141216, end: 20141219
  7. METHADONE [Suspect]
     Active Substance: METHADONE HYDROCHLORIDE
     Indication: CANCER PAIN
     Dosage: 5 MG, DAILY DOSE 15 MG
     Route: 048
     Dates: start: 20141117, end: 20141119
  8. FAMOTIDINE OD [Concomitant]
     Active Substance: FAMOTIDINE
     Dosage: 20 MG, UNK
     Route: 048
     Dates: end: 20141215
  9. NOVAMIN [Concomitant]
     Active Substance: PROCHLORPERAZINE MALEATE
     Dosage: 15 MG, UNK
     Route: 048
     Dates: end: 20141126
  10. AMITIZA [Concomitant]
     Active Substance: LUBIPROSTONE
     Dosage: 48 ?G, UNK
     Route: 048
     Dates: end: 20141215
  11. METHADONE [Suspect]
     Active Substance: METHADONE HYDROCHLORIDE
     Dosage: 5 MG, DAILY DOSE 15 MG
     Route: 048
     Dates: start: 20141205, end: 20141215
  12. OXIFAST [Concomitant]
     Active Substance: OXYCODONE
     Indication: ANALGESIC THERAPY
     Dosage: 5 MG, UNK
     Route: 051
     Dates: start: 20141216, end: 20141216
  13. RINDERON V [Concomitant]
     Active Substance: BETAMETHASONE VALERATE
     Dosage: 1.0 MG, UNK
     Route: 048
     Dates: end: 20141215
  14. XYLOCAINE FOR INTRAVENOUS INJECTION [Concomitant]
     Dosage: 100 MG, UNK
     Route: 042
     Dates: start: 20141130, end: 20141207
  15. RIVOTRIL [Concomitant]
     Active Substance: CLONAZEPAM
     Dosage: 0.5 MG, UNK
     Route: 048
     Dates: start: 20141201, end: 20141208
  16. BAYASPIRIN [Concomitant]
     Active Substance: ASPIRIN
     Dosage: 100 MG, UNK
     Route: 048
     Dates: end: 20141215
  17. METHADONE [Suspect]
     Active Substance: METHADONE HYDROCHLORIDE
     Dosage: 5 MG, DAILY DOSE 10 MG
     Route: 048
     Dates: start: 20141120, end: 20141204
  18. KETALAR [Concomitant]
     Active Substance: KETAMINE HYDROCHLORIDE
     Indication: ANALGESIC THERAPY
     Dosage: 50 MG, UNK
     Route: 051
     Dates: start: 20141216, end: 20141219

REACTIONS (1)
  - Ureteric cancer [Fatal]

NARRATIVE: CASE EVENT DATE: 20141219
